FAERS Safety Report 8276088-7 (Version None)
Quarter: 2012Q2

REPORT INFORMATION
  Report Type: 
  Country: None (occurrence: None)
  Receive Date: 20120405
  Receipt Date: 20120326
  Transmission Date: 20120825
  Serious: Yes (Other)
  Sender: FDA-Public Use
  Company Number: 2012SP016581

PATIENT
  Age: 18 Year
  Sex: Female
  Weight: 86.637 kg

DRUGS (4)
  1. IMPLANON [Suspect]
     Indication: CONTRACEPTION
     Dosage: 1 DF;
     Dates: start: 20110819
  2. ULTRAM [Concomitant]
  3. NAPROSYN [Concomitant]
  4. FLONASE [Concomitant]

REACTIONS (5)
  - SYSTEMIC LUPUS ERYTHEMATOSUS [None]
  - METRORRHAGIA [None]
  - APPLICATION SITE ANAESTHESIA [None]
  - WEIGHT INCREASED [None]
  - APPLICATION SITE DISCOMFORT [None]
